FAERS Safety Report 5368970-5 (Version None)
Quarter: 2007Q2

REPORT INFORMATION
  Report Type: 
  Country: None (occurrence: None)
  Receive Date: 20070620
  Receipt Date: 20070608
  Transmission Date: 20071010
  Serious: Yes (Life-Threatening, Hospitalization)
  Sender: FDA-Public Use
  Company Number: 100#03#2007-00930

PATIENT
  Age: 39 Year
  Sex: Female

DRUGS (4)
  1. CITALOPRAM HYDROBROMIDE [Suspect]
     Indication: DRUG USE FOR UNKNOWN INDICATION
     Dosage: (1/1 DAYS), ORAL
     Route: 048
  2. SUMATRIPTAN SUCCINATE [Suspect]
     Indication: MIGRAINE
     Dosage: 50 MG (1/ 1DAYS)/ONCE
     Dates: start: 20070202, end: 20070202
  3. IMODIUM (LOPERAMIDE HYDROCHLORIDE)  (LOPERAMIDE, SIMETHICONE) [Concomitant]
  4. MICROGYNON (EUGYNON (ETHINYLESTRADIOL, LEVONORGESTREL, ) [Concomitant]

REACTIONS (15)
  - ABASIA [None]
  - ANAPHYLACTIC SHOCK [None]
  - CHEST PAIN [None]
  - CIRCULATORY COLLAPSE [None]
  - DIARRHOEA [None]
  - DRUG INTERACTION [None]
  - DYSPNOEA [None]
  - GASTROENTERITIS [None]
  - HYPERHIDROSIS [None]
  - MALAISE [None]
  - PHARYNGEAL OEDEMA [None]
  - PHOTOPHOBIA [None]
  - RASH [None]
  - THROAT TIGHTNESS [None]
  - VOMITING [None]
